FAERS Safety Report 6918236-4 (Version None)
Quarter: 2010Q3

REPORT INFORMATION
  Report Type: 
  Country: None (occurrence: None)
  Receive Date: 20100811
  Receipt Date: 20100727
  Transmission Date: 20110219
  Serious: Yes (Hospitalization, Other)
  Sender: FDA-Public Use
  Company Number: US-SHIRE-SPV1-2010-01370

PATIENT

DRUGS (5)
  1. VYVANSE [Suspect]
     Indication: ACCIDENTAL EXPOSURE
     Dosage: 50 MG, UNK
     Dates: start: 20100305, end: 20100305
  2. CLONIDINE [Suspect]
     Indication: ACCIDENTAL EXPOSURE
     Dosage: .1 MG, UNK
     Dates: start: 20100305, end: 20100305
  3. TRAZODONE [Suspect]
     Indication: ACCIDENTAL EXPOSURE
     Dosage: 50 MG, UNK
     Dates: start: 20100305, end: 20100305
  4. LEVOTHYROXINE [Suspect]
     Indication: ACCIDENTAL EXPOSURE
     Dosage: 50 MG, UNK
     Dates: start: 20100305, end: 20100305
  5. PREDNISONE [Suspect]
     Indication: ACCIDENTAL EXPOSURE
     Dosage: 20 MG, UNK
     Dates: start: 20100305, end: 20100305

REACTIONS (4)
  - ACCIDENTAL DRUG INTAKE BY CHILD [None]
  - DIARRHOEA [None]
  - SOMNOLENCE [None]
  - VENTRICULAR EXTRASYSTOLES [None]
